FAERS Safety Report 7979430-7 (Version None)
Quarter: 2011Q4

REPORT INFORMATION
  Report Type: 
  Country: None (occurrence: None)
  Receive Date: 20111213
  Receipt Date: 20111213
  Transmission Date: 20120403
  Serious: Yes (Hospitalization)
  Sender: FDA-Public Use
  Company Number: None

PATIENT
  Age: 90 Year
  Sex: Male
  Weight: 69.6 kg

DRUGS (2)
  1. QUETIAPINE [Suspect]
     Indication: AGITATION
     Dosage: 12.5 MG BID PO
     Route: 048
     Dates: start: 20110903, end: 20110905
  2. QUETIAPINE [Suspect]
     Indication: SEDATION
     Dosage: 12.5 MG BID PO
     Route: 048
     Dates: start: 20110903, end: 20110905

REACTIONS (4)
  - SEDATION [None]
  - BRADYCARDIA [None]
  - CONFUSIONAL STATE [None]
  - ELECTROCARDIOGRAM QT PROLONGED [None]
